FAERS Safety Report 9920967 (Version 3)
Quarter: 2014Q2

REPORT INFORMATION
  Report Type: Spontaneous
  Country: US (occurrence: US)
  Receive Date: 20140225
  Receipt Date: 20140415
  Transmission Date: 20141212
  Serious: Yes (Hospitalization)
  Sender: FDA-Public Use
  Company Number: US-BIOGENIDEC-2014BI017059

PATIENT
  Age: 66 Year
  Sex: Male

DRUGS (33)
  1. TYSABRI [Suspect]
     Indication: CROHN^S DISEASE
     Route: 042
     Dates: start: 20100503, end: 20140109
  2. ALBUTEROL [Concomitant]
     Indication: DYSPNOEA
     Route: 048
  3. ASPIRIN [Concomitant]
     Route: 048
  4. AZELASTINE [Concomitant]
     Route: 045
  5. CALCIUM + D [Concomitant]
     Route: 048
  6. CHERATUSSIN AC [Concomitant]
     Indication: COUGH
     Route: 048
  7. CLOTRIMAZOLE [Concomitant]
     Route: 048
  8. COUMADIN [Concomitant]
     Route: 048
  9. CYANOCOBALAMIN [Concomitant]
     Route: 030
  10. DIPHENHYDRAMINE [Concomitant]
     Route: 048
  11. DIPHENOXYLATE-ATROPINE [Concomitant]
     Indication: DIARRHOEA
     Route: 048
  12. DOXAZOSIN [Concomitant]
     Route: 048
  13. DULOXETINE [Concomitant]
     Indication: FIBROMYALGIA
     Route: 048
  14. DULOXETINE [Concomitant]
     Indication: OSTEOARTHRITIS
     Route: 048
  15. ERGOCALCIFEROL [Concomitant]
     Route: 048
  16. ERYTHROMYCIN [Concomitant]
     Route: 048
  17. FINASTERIDE [Concomitant]
     Route: 048
  18. FLUDROCORTISONE [Concomitant]
     Route: 048
  19. FLUTICASONE [Concomitant]
     Route: 045
  20. ISOSORBIDE MONONITRATE [Concomitant]
     Route: 048
  21. METOPROLOL SUCCINATE [Concomitant]
     Route: 048
  22. MULTIVITAMIN [Concomitant]
     Route: 048
  23. NITROGLYCERIN [Concomitant]
     Indication: CHEST PAIN
     Route: 060
  24. ONDANSETRON [Concomitant]
     Indication: NAUSEA
     Route: 048
  25. PANTOPRAZOLE [Concomitant]
     Route: 048
  26. POTASSIUM CHLORIDE [Concomitant]
     Route: 048
  27. PRAVASTATIN [Concomitant]
     Route: 048
  28. PREDNISONE [Concomitant]
  29. SUMATRIPTAN [Concomitant]
     Indication: HEADACHE
     Route: 048
  30. TEMAZEPAM [Concomitant]
     Indication: INSOMNIA
     Route: 048
  31. TIOTROPIUM [Concomitant]
     Route: 048
  32. VITAMIN B-6 [Concomitant]
     Route: 048
  33. VITAMIN C [Concomitant]
     Route: 048

REACTIONS (3)
  - Bronchiectasis [Unknown]
  - Metabolic acidosis [Unknown]
  - Renal failure acute [Unknown]
